FAERS Safety Report 4286118-5 (Version None)
Quarter: 2004Q1

REPORT INFORMATION
  Report Type: 
  Country: None (occurrence: None)
  Receive Date: 20040204
  Receipt Date: 20040204
  Transmission Date: 20041129
  Serious: Yes (Hospitalization)
  Sender: FDA-Public Use
  Company Number: None

PATIENT
  Age: 56 Year
  Sex: Female
  Weight: 93.9 kg

DRUGS (9)
  1. FLUDARA [Suspect]
     Indication: CHEMOTHERAPY
     Dosage: 57MG QD INTRAVENOUS
     Route: 042
     Dates: start: 20031125, end: 20031129
  2. CYTOXAN [Suspect]
     Indication: ACUTE LYMPHOCYTIC LEUKAEMIA
     Dosage: 1.9G, QD INTRAVENOUS
     Route: 042
     Dates: start: 20031130, end: 20031201
  3. CYTOXAN [Suspect]
     Indication: STEM CELL TRANSPLANT
     Dosage: 1.9G, QD INTRAVENOUS
     Route: 042
     Dates: start: 20031130, end: 20031201
  4. PREDNISONE [Concomitant]
  5. CELLCEPT [Concomitant]
  6. ACTIGALL [Concomitant]
  7. CYCLOSPORINE [Concomitant]
  8. VALCYTE [Concomitant]
  9. PREVACID [Concomitant]

REACTIONS (4)
  - DIARRHOEA [None]
  - HYPERBILIRUBINAEMIA [None]
  - NAUSEA [None]
  - VOMITING [None]
